FAERS Safety Report 15233471 (Version 1)
Quarter: 2018Q3

REPORT INFORMATION
  Report Type: Spontaneous
  Country: BR (occurrence: BR)
  Receive Date: 20180802
  Receipt Date: 20180802
  Transmission Date: 20181010
  Serious: Yes (Other)
  Sender: FDA-Public Use
  Company Number: BR-SA-2018SA197857

PATIENT
  Sex: Female

DRUGS (1)
  1. CLOMID [Suspect]
     Active Substance: CLOMIPHENE CITRATE

REACTIONS (3)
  - Abortion spontaneous [Unknown]
  - Exposure during pregnancy [Unknown]
  - Premature separation of placenta [Unknown]
